FAERS Safety Report 5854855-4 (Version None)
Quarter: 2008Q3

REPORT INFORMATION
  Report Type: 
  Country: None (occurrence: None)
  Receive Date: 20080822
  Receipt Date: 20080815
  Transmission Date: 20090109
  Serious: Yes (Other)
  Sender: FDA-Public Use
  Company Number: US-PFIZER INC-2008068718

PATIENT
  Sex: Male
  Weight: 100 kg

DRUGS (12)
  1. LIPITOR [Suspect]
     Indication: BLOOD CHOLESTEROL
  2. METFORMIN [Concomitant]
     Indication: DIABETES MELLITUS
  3. GLYSET [Concomitant]
     Indication: DIABETES MELLITUS
  4. FINASTERIDE [Concomitant]
  5. LANTUS [Concomitant]
     Indication: DIABETES MELLITUS
  6. LYRICA [Concomitant]
  7. AVANDIA [Concomitant]
     Indication: DIABETES MELLITUS
  8. HYDROCODONE BITARTRATE + ACETAMINOPHEN [Concomitant]
  9. METOPROLOL [Concomitant]
     Dosage: FREQ:ONE HALF TABLET ONCE DAILY
  10. ACETYLSALICYLIC ACID SRT [Concomitant]
  11. SALMON OIL [Concomitant]
  12. MULTI-VITAMINS [Concomitant]

REACTIONS (5)
  - DISTURBANCE IN ATTENTION [None]
  - GAIT DISTURBANCE [None]
  - OSTEOARTHRITIS [None]
  - PAIN [None]
  - THINKING ABNORMAL [None]
